FAERS Safety Report 16526996 (Version 1)
Quarter: 2019Q3

REPORT INFORMATION
  Report Type: Spontaneous
  Country: DK (occurrence: DK)
  Receive Date: 20190703
  Receipt Date: 20190703
  Transmission Date: 20191004
  Serious: Yes (Other)
  Sender: FDA-Public Use
  Company Number: DK-009507513-1907DNK000070

PATIENT
  Sex: Male

DRUGS (3)
  1. CARBOPLATIN. [Suspect]
     Active Substance: CARBOPLATIN
     Indication: NON-SMALL CELL LUNG CANCER STAGE IV
  2. PEMBROLIZUMAB. [Suspect]
     Active Substance: PEMBROLIZUMAB
     Indication: NON-SMALL CELL LUNG CANCER STAGE IV
  3. PEMETREXED DISODIUM [Suspect]
     Active Substance: PEMETREXED DISODIUM
     Indication: NON-SMALL CELL LUNG CANCER STAGE IV

REACTIONS (2)
  - Diarrhoea [Unknown]
  - Neutropenia [Unknown]
